FAERS Safety Report 8467043 (Version 4)
Quarter: 2012Q4

REPORT INFORMATION
  Report Type: 
  Country: US (occurrence: US)
  Receive Date: 20120320
  Receipt Date: 20121122
  Transmission Date: 20130627
  Serious: Yes (Death, Hospitalization, Other)
  Sender: FDA-Public Use
  Company Number: US-GENZYME-MOZO-1000676

PATIENT
  Age: 47 Year
  Sex: Female
  Weight: 108 kg

DRUGS (19)
  1. MOZOBIL [Suspect]
     Indication: ACUTE MYELOID LEUKAEMIA
     Dosage: 560 mcg/kg, qd
     Route: 042
     Dates: start: 20120219, end: 20120224
  2. MITOXANTRONE [Suspect]
     Indication: ACUTE MYELOID LEUKAEMIA
     Dosage: 8 mg/m2, qd
     Route: 042
     Dates: start: 20120220, end: 20120224
  3. ETOPOSIDE [Suspect]
     Indication: ACUTE MYELOID LEUKAEMIA
     Dosage: 100 mg/m2, qd
     Route: 042
     Dates: start: 20120220, end: 20120224
  4. CYTARABINE [Suspect]
     Indication: ACUTE MYELOID LEUKAEMIA
     Dosage: 1000 mg/m2, qd
     Route: 042
     Dates: start: 20120220, end: 20120224
  5. GRANULOCYTE COLONY STIMULATING FACTOR [Concomitant]
     Indication: ACUTE MYELOID LEUKAEMIA
     Dosage: UNK
     Route: 058
     Dates: start: 20120217, end: 20120224
  6. PLATELETS [Concomitant]
     Indication: PRODUCT USED FOR UNKNOWN INDICATION
     Dosage: UNK
     Route: 042
     Dates: start: 20120313, end: 20120313
  7. ACYCLOVIR [Concomitant]
     Indication: PROPHYLAXIS
     Dosage: 400 mg, tid
     Route: 048
  8. BACTRIM [Concomitant]
     Indication: PROPHYLAXIS
     Dosage: 1 Other, qd
     Route: 048
  9. ALBUTEROL [Concomitant]
     Indication: PRODUCT USED FOR UNKNOWN INDICATION
     Dosage: UNK
     Route: 065
  10. ALLOPURINOL [Concomitant]
     Indication: PRODUCT USED FOR UNKNOWN INDICATION
     Dosage: 300 mg, UNK
     Route: 065
  11. BIOTENE [Concomitant]
     Indication: PRODUCT USED FOR UNKNOWN INDICATION
     Dosage: UNK
     Route: 065
  12. CARVEDILOL [Concomitant]
     Indication: PRODUCT USED FOR UNKNOWN INDICATION
     Dosage: 3.125 mg, bid
     Route: 065
  13. DOCUSATE [Concomitant]
     Indication: PRODUCT USED FOR UNKNOWN INDICATION
     Dosage: UNK
     Route: 065
  14. HYDROXYUREA [Concomitant]
     Indication: PRODUCT USED FOR UNKNOWN INDICATION
     Dosage: UNK
     Route: 065
  15. OMEPRAZOLE [Concomitant]
     Indication: PRODUCT USED FOR UNKNOWN INDICATION
     Dosage: 20 mg, qd
     Route: 065
  16. OXYCODONE [Concomitant]
     Indication: PRODUCT USED FOR UNKNOWN INDICATION
     Dosage: UNK
     Route: 065
  17. OXYCONTIN [Concomitant]
     Indication: PRODUCT USED FOR UNKNOWN INDICATION
     Dosage: 10 mg, q12hr
     Route: 065
  18. SPIRIVA [Concomitant]
     Indication: PRODUCT USED FOR UNKNOWN INDICATION
     Dosage: UNK
     Route: 065
  19. MULTIVITAMIN [Concomitant]
     Indication: PRODUCT USED FOR UNKNOWN INDICATION
     Dosage: UNK
     Route: 065

REACTIONS (14)
  - Sepsis [Fatal]
  - Respiratory failure [Fatal]
  - Blood alkaline phosphatase increased [Unknown]
  - Diarrhoea [Not Recovered/Not Resolved]
  - Transfusion reaction [Unknown]
  - Bronchopulmonary aspergillosis [Unknown]
  - Haemorrhage intracranial [Fatal]
  - Haemoptysis [Unknown]
  - Oesophageal candidiasis [Unknown]
  - Mucosal inflammation [Unknown]
  - Tinea cruris [Unknown]
  - Blood creatinine increased [Unknown]
  - Oral candidiasis [Unknown]
  - Constipation [Unknown]
